FAERS Safety Report 4426081-7 (Version None)
Quarter: 2004Q3

REPORT INFORMATION
  Report Type: 
  Country: None (occurrence: None)
  Receive Date: 20040811
  Receipt Date: 20040727
  Transmission Date: 20050211
  Serious: Yes (Hospitalization, Other)
  Sender: FDA-Public Use
  Company Number: GBR-2004-0001186

PATIENT
  Age: 59 Year
  Sex: Male
  Weight: 98.5 kg

DRUGS (5)
  1. MORPHINE SULFATE [Suspect]
     Indication: ABDOMINAL PAIN
     Dosage: 20 MG, BID, ORAL
     Route: 048
     Dates: start: 20040120
  2. RAD001 (RAD 666 RAD+TAB) TABLET [Concomitant]
  3. GEMCITABINE (GEMCITABINE) [Concomitant]
  4. CO-DANTHRUSATE [Concomitant]
  5. MOVICOL (SODIUM BICARBONATE, POTASSIUM CHLORIDE, SODIUM CHLORIDE, MACR [Concomitant]

REACTIONS (2)
  - CONSTIPATION [None]
  - INTESTINAL OBSTRUCTION [None]
